FAERS Safety Report 22142571 (Version 1)
Quarter: 2023Q1

REPORT INFORMATION
  Report Type: Spontaneous
  Country: GB (occurrence: GB)
  Receive Date: 20230327
  Receipt Date: 20230327
  Transmission Date: 20230418
  Serious: Yes (Other)
  Sender: FDA-Public Use
  Company Number: GB-Crescent Pharma Limited-CRS202303-000042

PATIENT
  Age: 72 Year

DRUGS (1)
  1. CANDESARTAN [Suspect]
     Active Substance: CANDESARTAN
     Indication: Product used for unknown indication
     Dosage: UNK (PRESCRIBED ABOUT 18 MONTHS TO 24 MONTHS AGO)
     Route: 065
     Dates: end: 20230226

REACTIONS (3)
  - Haematochezia [Recovering/Resolving]
  - Condition aggravated [Recovering/Resolving]
  - Diarrhoea [Recovering/Resolving]

NARRATIVE: CASE EVENT DATE: 20221101
